FAERS Safety Report 7280423-6 (Version None)
Quarter: 2011Q1

REPORT INFORMATION
  Report Type: 
  Country: None (occurrence: None)
  Receive Date: 20110208
  Receipt Date: 20110131
  Transmission Date: 20110831
  Serious: Yes (Disabling)
  Sender: FDA-Public Use
  Company Number: FI-SANOFI-AVENTIS-200717919GDDC

PATIENT
  Age: 35 Year
  Sex: Female

DRUGS (10)
  1. EPIRUBICIN [Concomitant]
     Indication: BREAST CANCER
  2. ENANTON - SLOW RELEASE [Concomitant]
     Dates: start: 20060303, end: 20060303
  3. DOCETAXEL [Suspect]
     Route: 042
     Dates: start: 20060301, end: 20060601
  4. TRASTUZUMAB [Concomitant]
     Indication: BREAST CANCER
     Dosage: TOTAL FOR 9 WEEKS
     Route: 042
     Dates: start: 20060101, end: 20060101
  5. FLUOROURACIL [Concomitant]
     Indication: BREAST CANCER
  6. CYCLOPHOSPHAMIDE [Concomitant]
     Indication: BREAST CANCER
  7. ZOLADEX [Concomitant]
     Dosage: TOTAL 4 INJECTIONS
  8. DEXAMETASON [Concomitant]
     Dosage: 7.5 MG QD PRIOR, BID ON THE DAY OF AND THE DAY AFTER AND QD SECOND DAY AFTER DOCETAXEL TREATMENT.
     Route: 048
  9. OSELTAMIVIR [Concomitant]
     Route: 048
     Dates: start: 20060430, end: 20060503
  10. LANSOPRAZOLE [Concomitant]

REACTIONS (2)
  - MYOPATHY TOXIC [None]
  - MYALGIA [None]
